FAERS Safety Report 22191181 (Version 9)
Quarter: 2024Q3

REPORT INFORMATION
  Report Type: Spontaneous
  Country: US (occurrence: US)
  Receive Date: 20230410
  Receipt Date: 20240729
  Transmission Date: 20241017
  Serious: Yes (Other)
  Sender: BRISTOL MYERS SQUIBB
  Company Number: US-BRISTOL-MYERS SQUIBB COMPANY-2023-048249

PATIENT
  Age: 71 Year
  Sex: Female

DRUGS (4)
  1. REVLIMID [Suspect]
     Active Substance: LENALIDOMIDE
     Indication: Plasma cell myeloma
     Dosage: DAILY FOR 2 WEEKS
     Route: 048
     Dates: start: 20230308
  2. REVLIMID [Suspect]
     Active Substance: LENALIDOMIDE
     Dosage: DAILY FOR 14 DAYS ON AND 7 DAYS OFF
     Route: 048
     Dates: start: 20230320
  3. REVLIMID [Suspect]
     Active Substance: LENALIDOMIDE
     Route: 048
  4. REVLIMID [Suspect]
     Active Substance: LENALIDOMIDE
     Route: 048
     Dates: end: 202404

REACTIONS (23)
  - Pruritus [Unknown]
  - Epistaxis [Unknown]
  - Oedema peripheral [Unknown]
  - Pain in extremity [Unknown]
  - Abdominal pain [Unknown]
  - Abdominal distension [Unknown]
  - Weight increased [Unknown]
  - Vision blurred [Unknown]
  - Off label use [Unknown]
  - Tremor [Unknown]
  - Constipation [Unknown]
  - Anxiety [Unknown]
  - Abdominal pain upper [Unknown]
  - Headache [Unknown]
  - Back pain [Unknown]
  - Muscle spasms [Not Recovered/Not Resolved]
  - Neuropathy peripheral [Unknown]
  - Rash macular [Unknown]
  - Arthralgia [Unknown]
  - Sinusitis [Recovered/Resolved]
  - Diarrhoea [Unknown]
  - Ageusia [Unknown]
  - Parosmia [Unknown]

NARRATIVE: CASE EVENT DATE: 20230308
